FAERS Safety Report 19644705 (Version 1)
Quarter: 2021Q3

REPORT INFORMATION
  Report Type: Other
  Country: CA (occurrence: CA)
  Receive Date: 20210802
  Receipt Date: 20210802
  Transmission Date: 20211014
  Serious: Yes (Other)
  Sender: FDA-Public Use
  Company Number: CA-CELLTRION INC.-2021CA010000

PATIENT

DRUGS (15)
  1. SULFASALAZINE. [Suspect]
     Active Substance: SULFASALAZINE
     Indication: PRODUCT USED FOR UNKNOWN INDICATION
     Dosage: UNK
     Route: 065
  2. AMIODARONE [Concomitant]
     Active Substance: AMIODARONE
     Dosage: UNK
  3. CANDESARTAN. [Concomitant]
     Active Substance: CANDESARTAN
     Dosage: UNK
  4. ATORVASTATIN [Concomitant]
     Active Substance: ATORVASTATIN
  5. ELIQUIS [Concomitant]
     Active Substance: APIXABAN
  6. OMNARIS [Concomitant]
     Active Substance: CICLESONIDE
     Dosage: UNK
  7. RISEDRONATE [Concomitant]
     Active Substance: RISEDRONATE SODIUM
     Dosage: UNK
  8. METHYLPREDNISOLONE SODIUM SUCCINATE. [Concomitant]
     Active Substance: METHYLPREDNISOLONE SODIUM SUCCINATE
     Indication: PREMEDICATION
     Dosage: 100.0 MILLIGRAM
     Route: 042
  9. METOPROLOL. [Concomitant]
     Active Substance: METOPROLOL
  10. RITUXIMAB (UNKNOWN) [Suspect]
     Active Substance: RITUXIMAB
     Indication: RHEUMATOID ARTHRITIS
     Dosage: 1000.0 MILLIGRAM, CYCLICAL
     Route: 042
  11. PREDNISONE. [Concomitant]
     Active Substance: PREDNISONE
  12. RAPAFLO [Concomitant]
     Active Substance: SILODOSIN
  13. TYLENOL [Concomitant]
     Active Substance: ACETAMINOPHEN
     Indication: PREMEDICATION
  14. AMLODIPINE [Concomitant]
     Active Substance: AMLODIPINE BESYLATE
     Dosage: UNK
  15. BENADRYL [Concomitant]
     Active Substance: DIPHENHYDRAMINE HYDROCHLORIDE
     Indication: PREMEDICATION
     Dosage: 50 MILLIGRAM
     Route: 048

REACTIONS (2)
  - Pulmonary mass [Not Recovered/Not Resolved]
  - Blood glucose increased [Not Recovered/Not Resolved]
